FAERS Safety Report 7351788-1 (Version None)
Quarter: 2011Q1

REPORT INFORMATION
  Report Type: 
  Country: None (occurrence: None)
  Receive Date: 20110315
  Receipt Date: 20100928
  Transmission Date: 20110831
  Serious: Yes (Other)
  Sender: FDA-Public Use
  Company Number: US-BAYER-201019416NA

PATIENT
  Sex: Female
  Weight: 72 kg

DRUGS (12)
  1. YASMIN [Suspect]
     Indication: POLYCYSTIC OVARIES
     Dosage: UNK UNK, QD
     Route: 048
     Dates: start: 20071025, end: 20080530
  2. L-CARNITINE [Concomitant]
  3. MULTI-VITAMIN [Concomitant]
     Dosage: UNK UNK, QD
  4. MOTRIN [Concomitant]
     Dosage: 800 MG, TID
     Route: 048
  5. IBUPROFEN [Concomitant]
     Dosage: UNK
     Dates: start: 19920101
  6. ALPHA LIPOIC ACID [Concomitant]
  7. YASMIN [Suspect]
     Indication: CONTRACEPTION
  8. UNCODEABLE ^UNCLASSIFIABLE^ [Concomitant]
  9. THYROID TAB [Concomitant]
     Indication: HYPOTHYROIDISM
     Dosage: 30 MG, QD
     Route: 048
     Dates: start: 20050101, end: 20090901
  10. ALBUTEROL INHALER [Concomitant]
     Indication: ASTHMA
     Dosage: UNK UNK, PRN
     Route: 045
  11. COENZYME Q10 [Concomitant]
  12. IBUPROFEN [Concomitant]
     Dosage: 800 MG, UNK
     Dates: start: 20020101

REACTIONS (9)
  - ARTHRALGIA [None]
  - ANXIETY [None]
  - OEDEMA PERIPHERAL [None]
  - VEIN DISORDER [None]
  - WEIGHT INCREASED [None]
  - PAIN [None]
  - VENOUS INSUFFICIENCY [None]
  - DEEP VEIN THROMBOSIS [None]
  - PAIN IN EXTREMITY [None]
